FAERS Safety Report 6614953-4 (Version None)
Quarter: 2010Q1

REPORT INFORMATION
  Report Type: 
  Country: None (occurrence: None)
  Receive Date: 20100226
  Receipt Date: 20100216
  Transmission Date: 20100710
  Serious: Yes (Hospitalization)
  Sender: FDA-Public Use
  Company Number: 2010AL001081

PATIENT
  Sex: Female

DRUGS (2)
  1. ACYCLOVIR [Suspect]
     Indication: HERPES ZOSTER
     Dates: start: 20100120
  2. REMICADE [Concomitant]

REACTIONS (2)
  - ASPARTATE AMINOTRANSFERASE INCREASED [None]
  - GAMMA-GLUTAMYLTRANSFERASE INCREASED [None]
